FAERS Safety Report 20299190 (Version 2)
Quarter: 2022Q1

REPORT INFORMATION
  Report Type: Spontaneous
  Country: FR (occurrence: FR)
  Receive Date: 20220105
  Receipt Date: 20220117
  Transmission Date: 20220423
  Serious: Yes (Death, Other)
  Sender: FDA-Public Use
  Company Number: None

PATIENT

DRUGS (4)
  1. ZONEGRAN [Suspect]
     Active Substance: ZONISAMIDE
     Indication: Foetal exposure during pregnancy
     Dosage: DOSE AND FREQUENCY UNKNOWN
     Route: 064
     Dates: start: 20190704, end: 20200227
  2. LAMICTAL [Suspect]
     Active Substance: LAMOTRIGINE
     Indication: Foetal exposure during pregnancy
     Dosage: DOSE AND FREQUENCY UNKNOWN
     Route: 064
     Dates: start: 20190704, end: 20200227
  3. CLOBAZAM [Suspect]
     Active Substance: CLOBAZAM
     Indication: Foetal exposure during pregnancy
     Dosage: DOSE AND FREQUENCY UNKNOWN
     Route: 064
     Dates: start: 20190704, end: 20200227
  4. VALPROATE SODIUM [Suspect]
     Active Substance: VALPROATE SODIUM
     Indication: Foetal exposure during pregnancy
     Dosage: DOSE AND FREQUENCY UNKNOWN
     Route: 064
     Dates: start: 20190704, end: 20200227

REACTIONS (2)
  - Multiple congenital abnormalities [Fatal]
  - Foetal exposure during pregnancy [Fatal]

NARRATIVE: CASE EVENT DATE: 20200227
